FAERS Safety Report 16898310 (Version 1)
Quarter: 2019Q4

REPORT INFORMATION
  Report Type: Spontaneous
  Country: US (occurrence: US)
  Receive Date: 20191009
  Receipt Date: 20191009
  Transmission Date: 20200122
  Serious: Yes (Hospitalization)
  Sender: FDA-Public Use
  Company Number: US-MYLANLABS-2019M1094215

PATIENT
  Age: 65 Year
  Sex: Male

DRUGS (9)
  1. METHOTREXATE. [Interacting]
     Active Substance: METHOTREXATE
     Dosage: INFUSION, THIRD CYCLE
     Route: 042
     Dates: start: 20171229
  2. PRIMAQUINE [Interacting]
     Active Substance: PRIMAQUINE PHOSPHATE
     Indication: PNEUMOCYSTIS JIROVECII PNEUMONIA
     Dosage: 300 MILLIGRAM, QD
     Route: 048
  3. METHOTREXATE. [Interacting]
     Active Substance: METHOTREXATE
     Dosage: INFUSION, SECOND CYCLE
     Route: 042
     Dates: start: 20171116
  4. RITUXIMAB. [Concomitant]
     Active Substance: RITUXIMAB
     Indication: MANTLE CELL LYMPHOMA
     Route: 065
     Dates: start: 20171013
  5. LEUCOVORIN                         /00566701/ [Concomitant]
     Active Substance: LEUCOVORIN
     Indication: PROPHYLAXIS
     Route: 065
  6. CLINDAMYCIN. [Concomitant]
     Active Substance: CLINDAMYCIN
     Indication: PNEUMOCYSTIS JIROVECII PNEUMONIA
     Dosage: THREE TIMES A DAY
     Route: 048
  7. PREDNISONE. [Concomitant]
     Active Substance: PREDNISONE
     Indication: PNEUMOCYSTIS JIROVECII PNEUMONIA
     Dosage: TAPERED DOSE
     Route: 065
  8. METHOTREXATE. [Suspect]
     Active Substance: METHOTREXATE
     Indication: MANTLE CELL LYMPHOMA
     Dosage: INFUSION, FIRST CYCLE
     Route: 042
     Dates: start: 20171013
  9. SULFAMETHOXAZOLE AND TRIMETHOPRIM [Concomitant]
     Active Substance: SULFAMETHOXAZOLE\TRIMETHOPRIM
     Indication: PNEUMOCYSTIS JIROVECII PNEUMONIA
     Route: 065

REACTIONS (3)
  - Pneumocystis jirovecii pneumonia [Recovering/Resolving]
  - Drug clearance increased [Recovering/Resolving]
  - Drug interaction [Recovering/Resolving]
